FAERS Safety Report 9099040 (Version 2)
Quarter: 2013Q1

REPORT INFORMATION
  Report Type: Spontaneous
  Country: JP (occurrence: JP)
  Receive Date: 20130213
  Receipt Date: 20130313
  Transmission Date: 20140127
  Serious: Yes (Other)
  Sender: FDA-Public Use
  Company Number: JP-ASTELLAS-2013JP001309

PATIENT
  Age: 73 Year
  Sex: Female
  Weight: 66 kg

DRUGS (11)
  1. FUNGUARD [Suspect]
     Indication: ORBITAL APEX SYNDROME
     Dosage: 300 MG, UID/QD
     Route: 041
     Dates: start: 20060428, end: 20060522
  2. FUNGUARD [Suspect]
     Indication: FUNGAL INFECTION
  3. GASTER [Suspect]
     Indication: ORBITAL APEX SYNDROME
     Dosage: 20 MG, UID/QD
     Route: 048
     Dates: start: 20060425, end: 20060518
  4. GASTER [Suspect]
     Indication: FUNGAL INFECTION
  5. LOXONIN [Concomitant]
     Indication: ORBITAL APEX SYNDROME
     Dosage: 60 MG, TID
     Route: 048
     Dates: start: 20060425, end: 20060509
  6. LOXONIN [Concomitant]
     Indication: FUNGAL INFECTION
  7. SELBEX [Concomitant]
     Indication: ORBITAL APEX SYNDROME
     Dosage: 50 MG, TID
     Route: 048
     Dates: start: 20060425, end: 20060529
  8. SELBEX [Concomitant]
     Indication: FUNGAL INFECTION
  9. GRANDAXIN [Concomitant]
     Indication: AUTONOMIC NERVOUS SYSTEM IMBALANCE
     Dosage: 50 MG, TID
     Route: 048
     Dates: start: 20060425, end: 20060529
  10. CYTOTEC [Concomitant]
     Indication: ORBITAL APEX SYNDROME
     Dosage: 200 MG, QID
     Route: 048
     Dates: start: 20060504, end: 20060516
  11. CYTOTEC [Concomitant]
     Indication: FUNGAL INFECTION

REACTIONS (4)
  - Drug ineffective [Unknown]
  - Orbital apex syndrome [Unknown]
  - Fungal infection [Unknown]
  - Hepatic function abnormal [Recovered/Resolved]
